FAERS Safety Report 25367785 (Version 2)
Quarter: 2025Q3

REPORT INFORMATION
  Report Type: Spontaneous
  Country: US (occurrence: US)
  Receive Date: 20250528
  Receipt Date: 20250820
  Transmission Date: 20251021
  Serious: Yes (Other)
  Sender: BAYER HEALTHCARE PHARMACEUTICALS INC.
  Company Number: US-BAYER-2025A068162

PATIENT
  Sex: Male

DRUGS (4)
  1. KOVALTRY [Suspect]
     Active Substance: ANTIHEMOPHILIC FACTOR, HUMAN RECOMBINANT
     Indication: Factor VIII deficiency
     Dosage: STRENGTH 2000;INFUSE 3400 UNITS (3060-3740) SLOW IV PUSH UNK, TIW
     Route: 042
     Dates: start: 202007
  2. KOVALTRY [Suspect]
     Active Substance: ANTIHEMOPHILIC FACTOR, HUMAN RECOMBINANT
     Indication: Prophylaxis
     Dosage: STRENGTH 1000;;INFUSE 3400 UNITS (3060-3740) SLOW IV PUSH UNK, TIW
     Route: 042
     Dates: start: 202007
  3. KOVALTRY [Suspect]
     Active Substance: ANTIHEMOPHILIC FACTOR, HUMAN RECOMBINANT
     Indication: Intermenstrual bleeding
  4. LOVENOX [Concomitant]
     Active Substance: ENOXAPARIN SODIUM
     Indication: Thrombosis

REACTIONS (1)
  - Road traffic accident [None]
